FAERS Safety Report 15507951 (Version 1)
Quarter: 2018Q4

REPORT INFORMATION
  Report Type: Spontaneous
  Country: None (occurrence: US)
  Receive Date: 20181016
  Receipt Date: 20181016
  Transmission Date: 20190205
  Serious: No
  Sender: FDA-Public Use
  Company Number: US-AKRON, INC.-2056209

PATIENT
  Sex: Female

DRUGS (1)
  1. PROMETHAZINE HYDROCHLORIDE + CODEINE PHOSPHATE SYRUP [Suspect]
     Active Substance: CODEINE PHOSPHATE\PROMETHAZINE HYDROCHLORIDE
     Route: 048

REACTIONS (1)
  - Drug ineffective [Unknown]
